FAERS Safety Report 25238563 (Version 1)
Quarter: 2025Q2

REPORT INFORMATION
  Report Type: Spontaneous
  Country: RU (occurrence: RU)
  Receive Date: 20250425
  Receipt Date: 20250425
  Transmission Date: 20250716
  Serious: Yes (Other)
  Sender: RANBAXY
  Company Number: RU-SUN PHARMACEUTICAL INDUSTRIES LTD-2025R1-503886

PATIENT
  Age: 18 Year
  Sex: Female
  Weight: 49 kg

DRUGS (3)
  1. SOTRET [Suspect]
     Active Substance: ISOTRETINOIN
     Indication: Acne
     Route: 065
     Dates: start: 20250113
  2. SOTRET [Suspect]
     Active Substance: ISOTRETINOIN
     Route: 065
  3. SOTRET [Suspect]
     Active Substance: ISOTRETINOIN
     Route: 065

REACTIONS (1)
  - Platelet count increased [Not Recovered/Not Resolved]
